FAERS Safety Report 7060138-X (Version None)
Quarter: 2010Q4

REPORT INFORMATION
  Report Type: 
  Country: None (occurrence: None)
  Receive Date: 20101025
  Receipt Date: 20101013
  Transmission Date: 20110411
  Serious: Yes (Hospitalization, Other)
  Sender: FDA-Public Use
  Company Number: PHHY2008CA25639

PATIENT
  Sex: Female

DRUGS (8)
  1. SANDOSTATIN LAR [Suspect]
     Indication: GASTRIC MUCOSAL HYPERTROPHY
     Dosage: 10 MG EVERY 4 WEEKS
     Route: 030
     Dates: start: 20080729, end: 20100304
  2. SANDOSTATIN LAR [Suspect]
     Dosage: 30 MG, QMO
     Route: 030
  3. SANDOSTATIN LAR [Suspect]
     Dosage: 10 MG EVERY 4 WEEKS
     Route: 030
  4. ACTONEL [Concomitant]
     Indication: OSTEOPOROSIS
     Dosage: 35 MG, QW
  5. NORVASC [Concomitant]
     Dosage: 1.5 TABS, 7.5 MG DAILY
     Dates: start: 20090506
  6. NORVASC [Concomitant]
     Dosage: 1.5 DF DAILY
  7. VITAMIN D [Concomitant]
     Dosage: UNK
  8. METOPROLOL [Concomitant]

REACTIONS (21)
  - ANAEMIA [None]
  - AORTIC ANEURYSM [None]
  - ASTHENIA [None]
  - BLOOD PRESSURE SYSTOLIC INCREASED [None]
  - BONE DISORDER [None]
  - CARDIAC DISORDER [None]
  - CARDIAC PACEMAKER INSERTION [None]
  - COUGH [None]
  - DIARRHOEA [None]
  - DIZZINESS [None]
  - DYSPEPSIA [None]
  - ENDOSCOPY UPPER GASTROINTESTINAL TRACT [None]
  - GASTROINTESTINAL DISORDER [None]
  - HEART RATE IRREGULAR [None]
  - INCREASED UPPER AIRWAY SECRETION [None]
  - LUNG DISORDER [None]
  - MENIERE'S DISEASE [None]
  - OSTEOPOROSIS [None]
  - OVARIAN CYST [None]
  - OVARIAN ENLARGEMENT [None]
  - VOMITING [None]
